FAERS Safety Report 8419379-9 (Version None)
Quarter: 2012Q2

REPORT INFORMATION
  Report Type: 
  Country: None (occurrence: None)
  Receive Date: 20120607
  Receipt Date: 20120529
  Transmission Date: 20120825
  Serious: Yes (Other)
  Sender: FDA-Public Use
  Company Number: US-ASTRAZENECA-2012SE26253

PATIENT
  Age: 81 Year
  Sex: Female

DRUGS (1)
  1. NEXIUM [Suspect]
     Route: 048

REACTIONS (4)
  - NASAL CONGESTION [None]
  - NASOPHARYNGITIS [None]
  - CATARACT [None]
  - BONE DENSITY ABNORMAL [None]
